FAERS Safety Report 6298352-3 (Version None)
Quarter: 2009Q3

REPORT INFORMATION
  Report Type: 
  Country: None (occurrence: None)
  Receive Date: 20090805
  Receipt Date: 20090731
  Transmission Date: 20100115
  Serious: Yes (Other)
  Sender: FDA-Public Use
  Company Number: US-SANOFI-SYNTHELABO-A03200903388

PATIENT
  Sex: Male

DRUGS (3)
  1. PLAVIX [Suspect]
     Indication: CORONARY ARTERIAL STENT INSERTION
     Route: 048
     Dates: start: 20090601, end: 20090701
  2. PLAVIX [Suspect]
     Route: 048
     Dates: start: 20090701, end: 20090701
  3. PLAVIX [Suspect]
     Dosage: 1 TABLET AT 8:00 AM, 1/2 AT NOON AND 1/2 AT DINNER
     Route: 048
     Dates: start: 20090701

REACTIONS (8)
  - DIARRHOEA [None]
  - DRUG RESISTANCE [None]
  - IN-STENT CORONARY ARTERY RESTENOSIS [None]
  - NAUSEA [None]
  - OVERDOSE [None]
  - PLATELET FUNCTION TEST ABNORMAL [None]
  - RASH [None]
  - WRONG TECHNIQUE IN DRUG USAGE PROCESS [None]
